FAERS Safety Report 6508485-1 (Version None)
Quarter: 2009Q4

REPORT INFORMATION
  Report Type: 
  Country: None (occurrence: None)
  Receive Date: 20091221
  Receipt Date: 20081118
  Transmission Date: 20100525
  Serious: No
  Sender: FDA-Public Use
  Company Number: US-ASTRAZENECA-2008UW25793

PATIENT
  Sex: Female

DRUGS (5)
  1. CRESTOR [Suspect]
     Route: 048
     Dates: start: 20080801
  2. CISTAINE EYE DROPS [Concomitant]
     Indication: DRY EYE
     Route: 047
  3. SYNTHROID [Concomitant]
  4. FOSAMAX [Concomitant]
  5. VERAPAMIL [Concomitant]

REACTIONS (1)
  - EYE PAIN [None]
